FAERS Safety Report 11915862 (Version 1)
Quarter: 2016Q1

REPORT INFORMATION
  Report Type: Spontaneous
  Country: HR (occurrence: HR)
  Receive Date: 20160114
  Receipt Date: 20160114
  Transmission Date: 20160526
  Serious: Yes (Hospitalization)
  Sender: FDA-Public Use
  Company Number: HR-WATSON-2015-29146

PATIENT
  Age: 79 Year
  Sex: Female

DRUGS (12)
  1. ALOPURINOL [Concomitant]
     Active Substance: ALLOPURINOL
     Indication: HYPERURICAEMIA
     Dosage: UNK UNK, DAILY (1 SEPARATE DOSAGE DAILY)
     Route: 048
  2. OKSAZEPAM BELUPO [Concomitant]
     Indication: DEPRESSION
     Dosage: UNK UNK, DAILY (1.5 SEPARATE DOSAGE DAILY)
     Route: 048
  3. CONTROLOC                          /01263201/ [Concomitant]
     Indication: GASTRITIS PROPHYLAXIS
     Dosage: 20 MG, DAILY
     Route: 048
  4. NINUR [Interacting]
     Active Substance: NITROFURANTOIN
     Indication: URINARY TRACT INFECTION
     Dosage: UNK
     Route: 048
     Dates: start: 201511
  5. ELICEA                             /01588501/ [Concomitant]
     Indication: DEPRESSION
     Dosage: UNK UNK, DAILY ( 1 SEPARATE DOSE DAILY)
     Route: 048
  6. NORMABEL [Concomitant]
     Active Substance: DIAZEPAM
     Indication: VASCULAR DEMENTIA
     Dosage: 5 MG, DAILY
     Route: 048
  7. EDEMID [Concomitant]
     Indication: HYPERTENSION
     Dosage: 1/4 TABLET PER DAY
     Route: 048
  8. CIPROFLOXACIN LACTATE [Interacting]
     Active Substance: CIPROFLOXACIN LACTATE
     Indication: URINARY TRACT INFECTION
     Dosage: UNK
     Route: 042
     Dates: start: 201511
  9. CEFUROXIME SODIUM (UNKNOWN) [Suspect]
     Active Substance: CEFUROXIME SODIUM
     Indication: URINARY TRACT INFECTION
     Dosage: UNK
     Route: 042
     Dates: start: 201511
  10. PRAZINE [Concomitant]
     Active Substance: PROMAZINE HYDROCHLORIDE
     Indication: VASCULAR DEMENTIA
     Dosage: 50 MG, DAILY
     Route: 048
  11. MARTEFARIN [Interacting]
     Active Substance: WARFARIN
     Indication: ATRIAL FIBRILLATION
     Dosage: UNK UNK, DAILY (1 SEPARATE DOSE DAILY)
     Route: 048
     Dates: start: 2014
  12. GLICLADA [Concomitant]
     Active Substance: GLICLAZIDE
     Indication: TYPE 2 DIABETES MELLITUS
     Dosage: 60 MG, BID
     Route: 048

REACTIONS (2)
  - Drug interaction [Recovered/Resolved]
  - International normalised ratio increased [Recovered/Resolved]

NARRATIVE: CASE EVENT DATE: 20151113
